FAERS Safety Report 6678121-2 (Version None)
Quarter: 2010Q2

REPORT INFORMATION
  Report Type: 
  Country: None (occurrence: None)
  Receive Date: 20100412
  Receipt Date: 20100407
  Transmission Date: 20101027
  Serious: Yes (Other)
  Sender: FDA-Public Use
  Company Number: IL-MERCK-1004ISR00007

PATIENT
  Age: 18 Year
  Sex: Female

DRUGS (1)
  1. MAXALT [Suspect]
     Route: 048

REACTIONS (1)
  - FACIAL PALSY [None]
